FAERS Safety Report 26096190 (Version 1)
Quarter: 2025Q4

REPORT INFORMATION
  Report Type: Spontaneous
  Country: US (occurrence: US)
  Receive Date: 20251127
  Receipt Date: 20251127
  Transmission Date: 20260117
  Serious: No
  Sender: SANOFI AVENTIS
  Company Number: US-SA-2025SA355012

PATIENT
  Sex: Male
  Weight: 86.36 kg

DRUGS (25)
  1. DUPIXENT [Suspect]
     Active Substance: DUPILUMAB
     Indication: Neurodermatitis
     Dosage: 300 MG, QOW
     Route: 058
  2. ICOSAPENT ETHYL [Concomitant]
     Active Substance: ICOSAPENT ETHYL
  3. BETAMETHASONE [Concomitant]
     Active Substance: BETAMETHASONE
  4. HYDROCORTISONE [Concomitant]
     Active Substance: HYDROCORTISONE
  5. ROSUVASTATIN CALCIUM [Concomitant]
     Active Substance: ROSUVASTATIN CALCIUM
  6. JARDIANCE [Concomitant]
     Active Substance: EMPAGLIFLOZIN
  7. AMLODIPINE BESYLATE [Concomitant]
     Active Substance: AMLODIPINE BESYLATE
  8. LANTUS SOLOSTAR [Concomitant]
     Active Substance: INSULIN GLARGINE
  9. TORSEMIDE [Concomitant]
     Active Substance: TORSEMIDE
  10. TACROLIMUS [Concomitant]
     Active Substance: TACROLIMUS
  11. GLIMEPIRIDE [Concomitant]
     Active Substance: GLIMEPIRIDE
  12. IRBESARTAN [Concomitant]
     Active Substance: IRBESARTAN
  13. BISOPROLOL FUMARATE [Concomitant]
     Active Substance: BISOPROLOL FUMARATE
  14. OMEPRAZOLE [Concomitant]
     Active Substance: OMEPRAZOLE
  15. TRULICITY [Concomitant]
     Active Substance: DULAGLUTIDE
  16. GABAPENTIN [Concomitant]
     Active Substance: GABAPENTIN
  17. EPLERENONE [Concomitant]
     Active Substance: EPLERENONE
  18. FENOFIBRATE [Concomitant]
     Active Substance: FENOFIBRATE
  19. GLUCOSAMINE SULFATE [Concomitant]
     Active Substance: GLUCOSAMINE SULFATE
  20. VITAMIN C [Concomitant]
     Active Substance: ASCORBIC ACID
  21. VITAMIN D3 [Concomitant]
     Active Substance: CHOLECALCIFEROL
  22. CINNAMON [Concomitant]
     Active Substance: CINNAMON
  23. TYLENOL EXTRA STRENGTH [Concomitant]
     Active Substance: ACETAMINOPHEN
  24. VITAMINS [Concomitant]
     Active Substance: VITAMINS
  25. MINERALS\VITAMINS [Concomitant]
     Active Substance: MINERALS\VITAMINS

REACTIONS (3)
  - Pruritus [Unknown]
  - Pain of skin [Unknown]
  - Condition aggravated [Unknown]
